FAERS Safety Report 18774888 (Version 1)
Quarter: 2021Q1

REPORT INFORMATION
  Report Type: Spontaneous
  Country: US (occurrence: US)
  Receive Date: 20210122
  Receipt Date: 20210122
  Transmission Date: 20210419
  Serious: Yes (Other)
  Sender: FDA-Public Use
  Company Number: US-PURDUE-USA-2020-0199445

PATIENT

DRUGS (1)
  1. OXYCONTIN [Suspect]
     Active Substance: OXYCODONE HYDROCHLORIDE
     Indication: LIMB INJURY
     Dosage: 1 PILL EVERY FOUR HOURS TO 10 PILLS EVERY FOUR HOURS (50 PILLS A DAY)
     Route: 048

REACTIONS (6)
  - Hepatitis C [Unknown]
  - Sleep disorder [Unknown]
  - Anger [Unknown]
  - Bipolar disorder [Unknown]
  - Drug dependence [Unknown]
  - Tooth loss [Unknown]
